FAERS Safety Report 13421677 (Version 4)
Quarter: 2017Q2

REPORT INFORMATION
  Report Type: Spontaneous
  Country: JP (occurrence: JP)
  Receive Date: 20170410
  Receipt Date: 20170607
  Transmission Date: 20170830
  Serious: Yes (Hospitalization, Disabling, Other)
  Sender: FDA-Public Use
  Company Number: JP-ROCHE-1916356

PATIENT
  Age: 70 Year
  Sex: Female
  Weight: 44 kg

DRUGS (21)
  1. AVASTIN [Suspect]
     Active Substance: BEVACIZUMAB
     Indication: COLON CANCER
     Dosage: TREATMENT LINE: 1ST
     Route: 041
     Dates: start: 20111005, end: 20121205
  2. OXALIPLATIN. [Concomitant]
     Active Substance: OXALIPLATIN
     Indication: COLON CANCER
     Dosage: DOSAGE IS UNCERTAIN.
     Route: 041
  3. LEVOFOLINATE [Concomitant]
     Active Substance: LEVOLEUCOVORIN CALCIUM
     Indication: COLON CANCER
     Dosage: DOSAGE IS UNCERTAIN.
     Route: 041
  4. IRINOTECAN HYDROCHLORIDE. [Concomitant]
     Active Substance: IRINOTECAN HYDROCHLORIDE
     Indication: COLON CANCER
     Dosage: DOSAGE IS UNCERTAIN.
     Route: 041
  5. XELODA [Suspect]
     Active Substance: CAPECITABINE
     Indication: COLON CANCER
     Dosage: DOSAGE IS UNCERTAIN.
     Route: 048
     Dates: start: 20111005, end: 20121205
  6. 5-FU [Suspect]
     Active Substance: FLUOROURACIL
     Indication: COLON CANCER
     Dosage: DOSAGE IS UNCERTAIN.
     Route: 041
  7. LONSURF [Concomitant]
     Active Substance: TIPIRACIL HYDROCHLORIDE\TRIFLURIDINE
     Dosage: DOSAGE IS UNCERTAIN.
     Route: 065
  8. OXALIPLATIN. [Concomitant]
     Active Substance: OXALIPLATIN
     Indication: COLON CANCER
     Dosage: DOSAGE IS UNCERTAIN.
     Route: 041
  9. REGORAFENIB [Concomitant]
     Active Substance: REGORAFENIB
     Dosage: DOSAGE IS UNCERTAIN.
     Route: 065
  10. GRANISETRON HYDROCHLORIDE. [Concomitant]
     Active Substance: GRANISETRON HYDROCHLORIDE
     Dosage: THE DOSE INTERVAL: EVERY 2-3 WEEK.
     Route: 042
     Dates: start: 20111005
  11. ATELEC [Concomitant]
     Active Substance: CILNIDIPINE
     Indication: HYPERTENSION
     Dosage: THE FRACTIONATION DOSE FREQUENCY IS UNCERTAIN. ?DOSE INTERVAL UNCERTAINTY
     Route: 048
     Dates: start: 20130111
  12. AVASTIN [Suspect]
     Active Substance: BEVACIZUMAB
     Indication: COLON CANCER
     Dosage: DOSAGE IS UNCERTAIN.
     Route: 041
     Dates: start: 20130920, end: 20140715
  13. 5-FU [Suspect]
     Active Substance: FLUOROURACIL
     Indication: COLON CANCER
     Dosage: DOSAGE IS UNCERTAIN.
     Route: 040
  14. BLOPRESS [Concomitant]
     Active Substance: CANDESARTAN CILEXETIL
     Indication: HYPERTENSION
     Dosage: THE FRACTIONATION DOSE FREQUENCY IS UNCERTAIN. ?DOSE INTERVAL UNCERTAINTY
     Route: 048
     Dates: start: 20111004
  15. 5-FU [Suspect]
     Active Substance: FLUOROURACIL
     Indication: COLON CANCER
  16. 5-FU [Suspect]
     Active Substance: FLUOROURACIL
     Indication: COLON CANCER
  17. CELECOX [Concomitant]
     Active Substance: CELECOXIB
     Dosage: THE FRACTIONATION DOSE FREQUENCY IS UNCERTAIN. ?DOSE INTERVAL UNCERTAINTY
     Route: 048
     Dates: start: 20170124
  18. AVASTIN [Suspect]
     Active Substance: BEVACIZUMAB
     Indication: PROPHYLAXIS
     Dosage: TREATMENT LINE 3RD LINE OR MORE. TREATMENT CYCLE OF THUS MEDICINE NUMBER 3 OR MORE
     Route: 041
     Dates: start: 20161025, end: 20170221
  19. DECADRON [Concomitant]
     Active Substance: DEXAMETHASONE
     Dosage: THE DOSE INTERVAL: EVERY 2-3 WEEK.
     Route: 042
     Dates: start: 20111005
  20. LEVOFOLINATE [Concomitant]
     Active Substance: LEVOLEUCOVORIN CALCIUM
     Indication: COLON CANCER
     Dosage: DOSAGE IS UNCERTAIN.
     Route: 041
  21. EMEND [Concomitant]
     Active Substance: APREPITANT
     Dosage: ONCE DOSAGE: 1ST DAY 128 MG, 2ND DAY 80 MG.?THE DOSE INTERVAL: EVERY 2-3 WEEK.
     Route: 048
     Dates: start: 20111005

REACTIONS (6)
  - Gangrene [Recovering/Resolving]
  - Off label use [Unknown]
  - Palmar-plantar erythrodysaesthesia syndrome [Recovering/Resolving]
  - Hypertension [Recovering/Resolving]
  - Rectal cancer recurrent [Unknown]
  - Hypoaesthesia [Recovered/Resolved]

NARRATIVE: CASE EVENT DATE: 20121221
